FAERS Safety Report 8962328 (Version 1)
Quarter: 2012Q4

REPORT INFORMATION
  Report Type: Spontaneous
  Country: US (occurrence: None)
  Receive Date: 20121211
  Receipt Date: 20121211
  Transmission Date: 20130627
  Serious: Yes (Other)
  Sender: FDA-Public Use
  Company Number: None

PATIENT
  Age: 46 Year
  Sex: Male
  Weight: 114.31 kg

DRUGS (1)
  1. ARTHROTEC [Suspect]
     Route: 048

REACTIONS (2)
  - No adverse event [None]
  - Drug ineffective [None]
